FAERS Safety Report 12882758 (Version 1)
Quarter: 2016Q4

REPORT INFORMATION
  Report Type: Spontaneous
  Country: FR (occurrence: FR)
  Receive Date: 20161025
  Receipt Date: 20161025
  Transmission Date: 20170207
  Serious: Yes (Other)
  Sender: FDA-Public Use
  Company Number: FR-UCBSA-2015037425

PATIENT
  Age: 38 Year
  Sex: Female

DRUGS (1)
  1. VIMPAT [Suspect]
     Active Substance: LACOSAMIDE
     Indication: EPILEPSY
     Dosage: 150 MG, 2X/DAY (BID)
     Route: 048

REACTIONS (4)
  - Pregnancy [Unknown]
  - Foetal death [Unknown]
  - Abortion induced [Unknown]
  - Off label use [Unknown]

NARRATIVE: CASE EVENT DATE: 201509
